FAERS Safety Report 4425562-X (Version None)
Quarter: 2004Q3

REPORT INFORMATION
  Report Type: 
  Country: None (occurrence: None)
  Receive Date: 20040810
  Receipt Date: 20040720
  Transmission Date: 20050211
  Serious: Yes (Other)
  Sender: FDA-Public Use
  Company Number: USA040772150

PATIENT
  Age: 44 Year
  Sex: Male
  Weight: 72 kg

DRUGS (3)
  1. STRATTERA [Suspect]
     Indication: ATTENTION DEFICIT/HYPERACTIVITY DISORDER
     Dosage: 60 MG/1 DAY
     Dates: start: 20040525, end: 20040702
  2. VALIUM [Concomitant]
  3. PREVACID [Concomitant]

REACTIONS (17)
  - ADVERSE DRUG REACTION [None]
  - BLISTER [None]
  - DISORIENTATION [None]
  - DIZZINESS [None]
  - DYSARTHRIA [None]
  - DYSPNOEA [None]
  - EATING DISORDER [None]
  - EYE SWELLING [None]
  - FEELING ABNORMAL [None]
  - HEAD INJURY [None]
  - LABILE BLOOD PRESSURE [None]
  - LACERATION [None]
  - LOSS OF CONSCIOUSNESS [None]
  - MOVEMENT DISORDER [None]
  - RASH [None]
  - TREMOR [None]
  - URTICARIA [None]
